FAERS Safety Report 20356305 (Version 4)
Quarter: 2024Q4

REPORT INFORMATION
  Report Type: Report from Study
  Country: EG (occurrence: EG)
  Receive Date: 20220120
  Receipt Date: 20241122
  Transmission Date: 20250115
  Serious: Yes (Other)
  Sender: NOVARTIS
  Company Number: EG-NOVARTISPH-NVSC2021EG170096

PATIENT
  Age: 19 Year
  Sex: Female

DRUGS (5)
  1. GILENYA [Suspect]
     Active Substance: FINGOLIMOD HYDROCHLORIDE
     Indication: Multiple sclerosis
     Dosage: 1 DF, QD
     Route: 048
     Dates: start: 20210125
  2. IMODIUM [Concomitant]
     Active Substance: LOPERAMIDE HYDROCHLORIDE
     Indication: Product used for unknown indication
     Dosage: UNK, PRN ONCE DAILY OCCAISONALY(WHEN NEEDED)
     Route: 065
  3. EMOFLOUR [Concomitant]
     Indication: Urinary incontinence
     Dosage: UNK, QD
     Route: 065
     Dates: start: 202107
  4. IMURAN [Concomitant]
     Active Substance: AZATHIOPRINE
     Indication: Immunodeficiency
     Dosage: 1 DOSAGE FORM, QD, ONE TABLET AT THE MORNING
     Route: 065
  5. ZINC [Concomitant]
     Active Substance: ZINC
     Indication: Supplementation therapy
     Dosage: UNK
     Route: 065

REACTIONS (5)
  - Weight decreased [Not Recovered/Not Resolved]
  - Contusion [Recovering/Resolving]
  - White blood cell count decreased [Unknown]
  - White blood cell count abnormal [Unknown]
  - Malaise [Unknown]

NARRATIVE: CASE EVENT DATE: 20210125
